FAERS Safety Report 20942213 (Version 1)
Quarter: 2022Q2

REPORT INFORMATION
  Report Type: Spontaneous
  Country: US (occurrence: US)
  Receive Date: 20220610
  Receipt Date: 20220610
  Transmission Date: 20220721
  Serious: No
  Sender: FDA-Public Use
  Company Number: US-Calliditas-2022CAL00124

PATIENT
  Age: 18 Year
  Sex: Male
  Weight: 71 kg

DRUGS (1)
  1. TARPEYO [Suspect]
     Active Substance: BUDESONIDE
     Indication: IgA nephropathy
     Dosage: 16 MG (4 MG CAPSULES) ONCE DAILY
     Route: 050
     Dates: start: 20220528

REACTIONS (5)
  - Headache [Unknown]
  - Pyrexia [Unknown]
  - Bronchitis [Unknown]
  - COVID-19 [Unknown]
  - Quarantine [Unknown]

NARRATIVE: CASE EVENT DATE: 20220601
